FAERS Safety Report 9092019 (Version 1)
Quarter: 2013Q1

REPORT INFORMATION
  Report Type: Report from Study
  Country: US (occurrence: US)
  Receive Date: 20130131
  Receipt Date: 20130131
  Transmission Date: 20140127
  Serious: Yes (Hospitalization)
  Sender: FDA-Public Use
  Company Number: US-ABBOTT-12P-163-0995299-00

PATIENT
  Age: 69 Year
  Sex: Female

DRUGS (4)
  1. HUMIRA [Suspect]
     Indication: PSORIATIC ARTHROPATHY
  2. 2 BLOOD PRESSURE MEDICINES [Concomitant]
     Indication: PRODUCT USED FOR UNKNOWN INDICATION
  3. MOOD STABILIZER [Concomitant]
     Indication: PRODUCT USED FOR UNKNOWN INDICATION
  4. AMBIEN [Concomitant]
     Indication: INSOMNIA

REACTIONS (4)
  - Cerebrovascular accident [Unknown]
  - Hypothyroidism [Unknown]
  - Psoriasis [Unknown]
  - Drug dispensing error [Unknown]
